FAERS Safety Report 6120552-3 (Version None)
Quarter: 2009Q1

REPORT INFORMATION
  Report Type: 
  Country: None (occurrence: None)
  Receive Date: 20090312
  Receipt Date: 20090312
  Transmission Date: 20090719
  Serious: No
  Sender: FDA-Public Use
  Company Number: None

PATIENT
  Age: 60 Year
  Sex: Male

DRUGS (1)
  1. VISIPAQUE [Suspect]
     Indication: DIAGNOSTIC PROCEDURE
     Dosage: 4 CCS ONCE, PROCEDURE IV
     Route: 042
     Dates: start: 20090305

REACTIONS (2)
  - CONTRAST MEDIA REACTION [None]
  - PRODUCT QUALITY ISSUE [None]
